FAERS Safety Report 13271145 (Version 2)
Quarter: 2017Q1

REPORT INFORMATION
  Report Type: Spontaneous
  Country: FR (occurrence: FR)
  Receive Date: 20170226
  Receipt Date: 20170330
  Transmission Date: 20170428
  Serious: Yes (Other)
  Sender: FDA-Public Use
  Company Number: FR-MYLANLABS-2017M1011413

PATIENT

DRUGS (2)
  1. LAMOTRIGINE MYLAN 25 MG, COMPRIM? DISPERSIBLE [Suspect]
     Active Substance: LAMOTRIGINE
     Dosage: 50 MG, QD
  2. LAMOTRIGINE MYLAN 25 MG, COMPRIM? DISPERSIBLE [Suspect]
     Active Substance: LAMOTRIGINE
     Indication: BIPOLAR DISORDER
     Dosage: 25 MG, QD
     Dates: start: 201610

REACTIONS (5)
  - Dry skin [Unknown]
  - Cough [Unknown]
  - Stevens-Johnson syndrome [Unknown]
  - Tongue discolouration [Unknown]
  - Erythema [Unknown]

NARRATIVE: CASE EVENT DATE: 2016
